FAERS Safety Report 20720836 (Version 1)
Quarter: 2022Q2

REPORT INFORMATION
  Report Type: Spontaneous
  Country: US (occurrence: None)
  Receive Date: 20220415
  Receipt Date: 20220415
  Transmission Date: 20220721
  Serious: Yes (Hospitalization)
  Sender: FDA-Public Use
  Company Number: None

PATIENT
  Age: 65 Year
  Sex: Male
  Weight: 79.7 kg

DRUGS (1)
  1. PACLITAXEL [Suspect]
     Active Substance: PACLITAXEL
     Indication: Lung squamous cell carcinoma metastatic
     Dosage: OTHER FREQUENCY : ONCE;?
     Route: 042
     Dates: start: 20220331, end: 20220331

REACTIONS (12)
  - Infusion related reaction [None]
  - Dyspnoea [None]
  - Oxygen saturation decreased [None]
  - Respiratory rate increased [None]
  - Anxiety [None]
  - Tachycardia [None]
  - Restlessness [None]
  - Pulse absent [None]
  - Drug hypersensitivity [None]
  - Agitation [None]
  - Unresponsive to stimuli [None]
  - Cardio-respiratory arrest [None]

NARRATIVE: CASE EVENT DATE: 20220331
